FAERS Safety Report 21236355 (Version 1)
Quarter: 2022Q3

REPORT INFORMATION
  Report Type: Spontaneous
  Country: CA (occurrence: CA)
  Receive Date: 20220822
  Receipt Date: 20220822
  Transmission Date: 20221026
  Serious: Yes (Hospitalization)
  Sender: FDA-Public Use
  Company Number: CA-APOTEX-2022AP010515

PATIENT
  Age: 70 Year
  Sex: Female

DRUGS (8)
  1. PMS TRANDOLAPRIL [Concomitant]
     Indication: Hypertension
     Dosage: 2 MILLIGRAM, QD
     Route: 065
  2. PRO-AZITHROMYCINE [Concomitant]
     Indication: Pneumonia
     Dosage: 2 DOSAGE FORM DURING MONDAYS, TUESDAYS AND FRIDAYS
     Route: 065
  3. GLYCOPYRRONIUM\INDACATEROL [Concomitant]
     Active Substance: GLYCOPYRRONIUM\INDACATEROL
     Indication: Lung disorder
     Dosage: 1 DOSAGE FORM, QD
     Route: 065
  4. VENTOLIN [Concomitant]
     Active Substance: ALBUTEROL SULFATE
     Indication: Dyspnoea
     Dosage: 200 DOSES MORNING, AFTERNOON AND SOMETIMES AT NIGHT AS NEEDED
     Route: 065
  5. FLUTICASONE [Concomitant]
     Active Substance: FLUTICASONE
     Indication: Lung disorder
     Dosage: 1 DOSAGE FORM, Q.AM (1 PUFF IN THE MORNING)
  6. OXAZEPAM [Concomitant]
     Active Substance: OXAZEPAM
     Indication: Insomnia
     Dosage: 1 DOSAGE FORM AT NIGHT
     Route: 065
  7. CLOTRIMAZOLE [Concomitant]
     Active Substance: CLOTRIMAZOLE
     Indication: Fungal infection
     Dosage: UNK, TID
     Route: 061
  8. BECLOMETHASONE DIPROPIONATE [Concomitant]
     Active Substance: BECLOMETHASONE DIPROPIONATE
     Indication: Product used for unknown indication
     Dosage: UNK
     Route: 065

REACTIONS (7)
  - Hospitalisation [Unknown]
  - Symptom recurrence [Unknown]
  - Skin burning sensation [Not Recovered/Not Resolved]
  - Ageusia [Not Recovered/Not Resolved]
  - Weight decreased [Not Recovered/Not Resolved]
  - Decreased appetite [Recovered/Resolved]
  - Drug ineffective [Unknown]

NARRATIVE: CASE EVENT DATE: 20220624
